FAERS Safety Report 16066917 (Version 1)
Quarter: 2019Q1

REPORT INFORMATION
  Report Type: Report from Study
  Country: DE (occurrence: DE)
  Receive Date: 20190313
  Receipt Date: 20190313
  Transmission Date: 20190418
  Serious: Yes (Hospitalization)
  Sender: FDA-Public Use
  Company Number: DE-ROCHE-2275841

PATIENT
  Age: 79 Year
  Sex: Female
  Weight: 86 kg

DRUGS (9)
  1. HYDROCHLOROTHIAZIDE. [Concomitant]
     Active Substance: HYDROCHLOROTHIAZIDE
     Route: 065
     Dates: end: 20190218
  2. ACICLOVIR [Concomitant]
     Active Substance: ACYCLOVIR
     Route: 065
     Dates: start: 201607
  3. ARCOXIA [Concomitant]
     Active Substance: ETORICOXIB
     Route: 065
  4. NOVALGIN (METAMIZOLE SODIUM) [Concomitant]
     Active Substance: METAMIZOLE SODIUM
  5. KALINOR [Concomitant]
     Dosage: 2 BAGS
     Route: 065
  6. RITUXIMAB. [Suspect]
     Active Substance: RITUXIMAB
     Indication: MANTLE CELL LYMPHOMA
     Dosage: ON 22/MAR/2016, RECEIVED THE LAST DOSE OF RITUXIMAB PRIOR TO THE EVENT
     Route: 058
     Dates: start: 20160119
  7. VALSARTAN. [Concomitant]
     Active Substance: VALSARTAN
  8. SPIRONOLACTONE. [Concomitant]
     Active Substance: SPIRONOLACTONE
     Route: 065
     Dates: end: 20190218
  9. BENDAMUSTINE [Suspect]
     Active Substance: BENDAMUSTINE
     Indication: MANTLE CELL LYMPHOMA
     Dosage: ON 26/MAY/2016,  RECEIVED THE LAST DOSE OF BENDAMUSTINE PRIOR TO THE EVENT
     Route: 042
     Dates: start: 20151219

REACTIONS (1)
  - Hyponatraemia [Recovered/Resolved]

NARRATIVE: CASE EVENT DATE: 20190218
